FAERS Safety Report 14187963 (Version 2)
Quarter: 2018Q1

REPORT INFORMATION
  Report Type: Spontaneous
  Country: FI (occurrence: FI)
  Receive Date: 20171114
  Receipt Date: 20180228
  Transmission Date: 20180508
  Serious: Yes (Other)
  Sender: FDA-Public Use
  Company Number: PHHY2017FI166293

PATIENT
  Age: 57 Year
  Sex: Female

DRUGS (7)
  1. COSENTYX [Suspect]
     Active Substance: SECUKINUMAB
     Indication: SPONDYLITIS
     Dosage: 150 MG, UNK
     Route: 058
     Dates: start: 20160829, end: 20170520
  2. LINATIL [Concomitant]
     Active Substance: ENALAPRIL MALEATE
     Indication: BLOOD PRESSURE MEASUREMENT
     Dosage: 20 MG, UNK
     Route: 048
     Dates: start: 201510
  3. LINATIL [Concomitant]
     Active Substance: ENALAPRIL MALEATE
     Indication: HYPERTENSION
     Dosage: 20 MG, QD (20 MG DAILY)
     Route: 048
  4. PREDNISOLONE. [Concomitant]
     Active Substance: PREDNISOLONE
     Indication: PRODUCT USED FOR UNKNOWN INDICATION
     Dosage: 20 MG, UNK
     Route: 065
  5. METOJECT [Concomitant]
     Active Substance: METHOTREXATE SODIUM
     Dosage: 25 MG, QW
     Route: 058
  6. METOJECT [Concomitant]
     Active Substance: METHOTREXATE SODIUM
     Indication: SPONDYLITIS
     Dosage: 15 MG, QW (15 MG WEEKLY)
     Route: 058
     Dates: start: 20140305
  7. PREDNISOLONE. [Concomitant]
     Active Substance: PREDNISOLONE
     Dosage: 5 MG, QD
     Route: 065

REACTIONS (23)
  - Cough [Recovered/Resolved]
  - Joint swelling [Recovered/Resolved]
  - Pain in extremity [Recovered/Resolved]
  - Nodule [Recovered/Resolved]
  - Contusion [Recovered/Resolved]
  - Panniculitis [Recovered/Resolved]
  - Haematoma [Recovered/Resolved]
  - Skin lesion [Recovered/Resolved]
  - DNA antibody positive [Recovered/Resolved]
  - Histone antibody positive [Recovered/Resolved]
  - Autoimmune disorder [Recovered/Resolved]
  - Peripheral swelling [Recovered/Resolved]
  - Pain [Recovered/Resolved]
  - Joint swelling [Recovered/Resolved]
  - Panniculitis [Recovered/Resolved]
  - Histone antibody positive [Recovered/Resolved]
  - Gait disturbance [Recovered/Resolved]
  - Localised oedema [Recovered/Resolved]
  - Therapeutic response decreased [Unknown]
  - Erythema [Recovered/Resolved]
  - Skin mass [Recovered/Resolved]
  - DNA antibody positive [Recovered/Resolved]
  - Erythema [Recovered/Resolved]

NARRATIVE: CASE EVENT DATE: 2017
